FAERS Safety Report 6406207-6 (Version None)
Quarter: 2009Q4

REPORT INFORMATION
  Report Type: 
  Country: None (occurrence: None)
  Receive Date: 20091019
  Receipt Date: 20091009
  Transmission Date: 20100525
  Serious: No
  Sender: FDA-Public Use
  Company Number: US-B.I. PHARMACEUTICALS,INC./RIDGEFIELD-2009-BP-11849BP

PATIENT
  Age: 75 Year
  Sex: Male

DRUGS (3)
  1. FLOMAX [Suspect]
     Indication: PROSTATE CANCER
     Dosage: 0.4 MG
     Route: 048
     Dates: start: 20040101
  2. LIPITOR [Concomitant]
     Indication: BLOOD CHOLESTEROL INCREASED
  3. CARDIZEM [Concomitant]
     Indication: HYPERTENSION

REACTIONS (2)
  - CATARACT [None]
  - MACULAR DEGENERATION [None]
